FAERS Safety Report 9245444 (Version 3)
Quarter: 2013Q3

REPORT INFORMATION
  Report Type: Report from Study
  Country: JP (occurrence: JP)
  Receive Date: 20130422
  Receipt Date: 20130725
  Transmission Date: 20140515
  Serious: Yes (Hospitalization, Other)
  Sender: FDA-Public Use
  Company Number: JP-ASTELLAS-2013JP005206

PATIENT
  Age: 78 Year
  Sex: Male

DRUGS (5)
  1. MIRABEGRON [Suspect]
     Indication: HYPERTONIC BLADDER
     Dosage: 50 MG, UID/QD
     Route: 048
     Dates: start: 20121127, end: 20130207
  2. BUP-4 [Concomitant]
     Indication: HYPERTONIC BLADDER
     Dosage: 20 MG, UNKNOWN/D
     Route: 048
     Dates: start: 20121217
  3. URIEF [Concomitant]
     Indication: BENIGN PROSTATIC HYPERPLASIA
     Dosage: 4 MG, UNKNOWN/D
     Route: 048
     Dates: end: 20121228
  4. EVIPROSTAT                         /00833501/ [Concomitant]
     Indication: BENIGN PROSTATIC HYPERPLASIA
     Dosage: 3 DF, UNKNOWN/D
     Route: 048
  5. CELECOX [Concomitant]
     Indication: SPINAL COMPRESSION FRACTURE
     Route: 048

REACTIONS (2)
  - Spinal compression fracture [Unknown]
  - Spinal compression fracture [Unknown]
